FAERS Safety Report 4284676-8 (Version None)
Quarter: 2004Q1

REPORT INFORMATION
  Report Type: 
  Country: None (occurrence: None)
  Receive Date: 20040203
  Receipt Date: 20021219
  Transmission Date: 20041129
  Serious: Yes (Other)
  Sender: FDA-Public Use
  Company Number: WAES 0401USA01796

PATIENT
  Age: 82 Year
  Sex: Male

DRUGS (3)
  1. AMPICILLIN SODIUM [Concomitant]
     Indication: PNEUMONIA
     Dates: end: 20040121
  2. ASPOXICILLIN [Concomitant]
     Indication: PNEUMONIA
     Dates: end: 20040121
  3. PRIMAXIN [Suspect]
     Indication: PNEUMONIA
     Route: 042
     Dates: start: 20040122, end: 20040123

REACTIONS (4)
  - INJECTION SITE ERYTHEMA [None]
  - INJECTION SITE VESICLES [None]
  - SKIN NECROSIS [None]
  - SKIN ULCER [None]
